FAERS Safety Report 6206449-9 (Version None)
Quarter: 2009Q2

REPORT INFORMATION
  Report Type: 
  Country: None (occurrence: None)
  Receive Date: 20090527
  Receipt Date: 20090527
  Transmission Date: 20091009
  Serious: Yes (Hospitalization)
  Sender: FDA-Public Use
  Company Number: None

PATIENT
  Age: 40 Year
  Sex: Male
  Weight: 78.4723 kg

DRUGS (2)
  1. ALIMTA [Suspect]
     Indication: SQUAMOUS CELL CARCINOMA
     Dosage: 500MG/M2
     Dates: start: 20090424, end: 20090526
  2. AVASTIN [Suspect]
     Indication: SQUAMOUS CELL CARCINOMA
     Dosage: 15MG/KG
     Dates: start: 20090424, end: 20090526

REACTIONS (2)
  - CHEST X-RAY ABNORMAL [None]
  - NAUSEA [None]
